FAERS Safety Report 20922376 (Version 1)
Quarter: 2022Q2

REPORT INFORMATION
  Report Type: Other
  Country: US (occurrence: None)
  Receive Date: 20220607
  Receipt Date: 20220607
  Transmission Date: 20220721
  Serious: Yes (Other)
  Sender: FDA-Public Use
  Company Number: US-ROCHE-3108334

PATIENT
  Sex: Female
  Weight: 70.76 kg

DRUGS (6)
  1. OCREVUS [Suspect]
     Active Substance: OCRELIZUMAB
     Indication: Multiple sclerosis
     Dosage: INFUSE 600 MG IV EVERY 6 MONTHS
     Route: 042
  2. METHYLPREDNISOLONE [Concomitant]
     Active Substance: METHYLPREDNISOLONE
  3. ACETAMINOPHEN [Concomitant]
     Active Substance: ACETAMINOPHEN
  4. DIPHENHYDRAMINE [Concomitant]
     Active Substance: DIPHENHYDRAMINE
  5. LOSARTAN [Concomitant]
     Active Substance: LOSARTAN
  6. MOBIC [Concomitant]
     Active Substance: MELOXICAM

REACTIONS (6)
  - Colitis ulcerative [Unknown]
  - Dizziness [Unknown]
  - Hyperlipidaemia [Unknown]
  - Hypertension [Unknown]
  - Vertigo [Unknown]
  - Impaired work ability [Unknown]
